FAERS Safety Report 8217744-6 (Version None)
Quarter: 2012Q1

REPORT INFORMATION
  Report Type: 
  Country: None (occurrence: None)
  Receive Date: 20120319
  Receipt Date: 20120309
  Transmission Date: 20120608
  Serious: Yes (Other)
  Sender: FDA-Public Use
  Company Number: US-JNJFOC-20120306316

PATIENT
  Sex: Male
  Weight: 170.1 kg

DRUGS (1)
  1. STELARA [Suspect]
     Indication: PSORIASIS
     Route: 058
     Dates: start: 20120201

REACTIONS (4)
  - ABDOMINAL DISTENSION [None]
  - PSORIASIS [None]
  - DRUG INEFFECTIVE [None]
  - VISION BLURRED [None]
